FAERS Safety Report 23339968 (Version 1)
Quarter: 2023Q4

REPORT INFORMATION
  Report Type: Spontaneous
  Country: US (occurrence: US)
  Receive Date: 20231226
  Receipt Date: 20231226
  Transmission Date: 20240109
  Serious: Yes (Other)
  Sender: FDA-Public Use
  Company Number: US-PFIZER INC-202300448962

PATIENT
  Age: 99 Year
  Sex: Female

DRUGS (2)
  1. PAXLOVID [Suspect]
     Active Substance: NIRMATRELVIR\RITONAVIR
     Indication: COVID-19 treatment
     Dosage: 3 DF, 2X/DAY (3 TABLETS BY MOUTH TWICE A DAY FOR FIVE DAYS)
     Route: 048
     Dates: start: 20231212, end: 20231216
  2. METOPROLOL SUCCINATE [Concomitant]
     Active Substance: METOPROLOL SUCCINATE
     Indication: Blood pressure measurement
     Dosage: 75 MG, DAILY

REACTIONS (5)
  - Hallucination [Unknown]
  - Confusional state [Unknown]
  - Restlessness [Unknown]
  - Insomnia [Unknown]
  - Anxiety [Unknown]
